FAERS Safety Report 19105551 (Version 3)
Quarter: 2021Q2

REPORT INFORMATION
  Report Type: Other
  Country: US (occurrence: US)
  Receive Date: 20210407
  Receipt Date: 20210501
  Transmission Date: 20210717
  Serious: Yes (Hospitalization, Other)
  Sender: FDA-Public Use
  Company Number: US-ROCHE-2799406

PATIENT
  Age: 69 Year
  Sex: Female
  Weight: 90.8 kg

DRUGS (14)
  1. LOSARTAN POTASSIUM. [Concomitant]
     Active Substance: LOSARTAN POTASSIUM
     Dosage: EVENING
     Route: 048
  2. VITAMIN D3 [Concomitant]
     Active Substance: CHOLECALCIFEROL
     Dosage: TWO, 2,000 UNIT SOFT GELS ONCE A DAY
     Route: 048
  3. MELATONIN [Concomitant]
     Active Substance: MELATONIN
     Dosage: TWO, 3 MG TABLETS AS NEEDED AT BEDTIME
     Route: 048
     Dates: start: 20210218
  4. OCREVUS [Suspect]
     Active Substance: OCRELIZUMAB
     Indication: PRIMARY PROGRESSIVE MULTIPLE SCLEROSIS
     Dosage: DATE OF TREATMENT: 18/MAY/2018, 16/NOV/2018, 17/MAY/2019, 18/JUN/2020, 04/JAN/2021
     Route: 042
  5. CARBAMAZEPINE. [Concomitant]
     Active Substance: CARBAMAZEPINE
     Indication: TRIGEMINAL NEURALGIA
     Dosage: THREE 100 MG TABLETS IN EVENING
     Route: 048
  6. ZINC SULFATE. [Concomitant]
     Active Substance: ZINC SULFATE
     Route: 048
     Dates: start: 20210217, end: 20210324
  7. THIAMINE [THIAMINE HYDROCHLORIDE] [Concomitant]
     Route: 048
  8. CALCIUM CARBONATE. [Concomitant]
     Active Substance: CALCIUM CARBONATE
     Dosage: EVERY 12 HOURS
     Route: 048
     Dates: start: 20210217, end: 202103
  9. PHOSPHORUS [Concomitant]
     Active Substance: PHOSPHORUS
     Dosage: STIRRED IN 2.5 OUNCES OF WATER
     Route: 048
     Dates: start: 20210217, end: 202103
  10. SERTRALINE [Concomitant]
     Active Substance: SERTRALINE HYDROCHLORIDE
     Indication: ANXIETY
     Route: 048
  11. ATORVASTATIN [Concomitant]
     Active Substance: ATORVASTATIN
     Indication: BLOOD CHOLESTEROL
     Route: 048
  12. ZINC SULFATE. [Concomitant]
     Active Substance: ZINC SULFATE
     Route: 048
     Dates: start: 20210324
  13. FOLIC ACID. [Concomitant]
     Active Substance: FOLIC ACID
     Route: 048
  14. CALCIUM CARBONATE. [Concomitant]
     Active Substance: CALCIUM CARBONATE
     Route: 048
     Dates: start: 202103

REACTIONS (3)
  - Thrombosis [Recovered/Resolved]
  - COVID-19 [Recovered/Resolved]
  - Incoherent [Recovered/Resolved]

NARRATIVE: CASE EVENT DATE: 202102
